FAERS Safety Report 16960326 (Version 7)
Quarter: 2020Q1

REPORT INFORMATION
  Report Type: Spontaneous
  Country: US (occurrence: US)
  Receive Date: 20191025
  Receipt Date: 20200123
  Transmission Date: 20200409
  Serious: No
  Sender: FDA-Public Use
  Company Number: US-PFIZER INC-2019458667

PATIENT
  Age: 62 Year
  Sex: Female
  Weight: 67 kg

DRUGS (9)
  1. XELJANZ [Suspect]
     Active Substance: TOFACITINIB CITRATE
     Indication: COLITIS ULCERATIVE
     Dosage: 10 MG, 2X/DAY
     Route: 048
     Dates: start: 201908, end: 20191029
  2. CALCIUM + VITAMIN D [CALCIUM;COLECALCIFEROL] [Concomitant]
     Indication: BONE DISORDER
     Dosage: 2 DF, DAILY
     Dates: start: 2018
  3. XELJANZ [Suspect]
     Active Substance: TOFACITINIB CITRATE
     Dosage: 5 MG, 2X/DAY
     Route: 048
     Dates: start: 20191030
  4. PREVIDENT 5000 PLUS SPEARMINT [Concomitant]
     Active Substance: SODIUM FLUORIDE
     Dosage: UNK (1-2 TIMES PER DAY)
     Dates: start: 2018
  5. SIMVASTATIN. [Concomitant]
     Active Substance: SIMVASTATIN
     Indication: BLOOD CHOLESTEROL
     Dosage: 0.5 DF, DAILY
     Route: 048
     Dates: start: 2010
  6. IRON [Concomitant]
     Active Substance: IRON
     Indication: ANAEMIA
     Dosage: 18 MG, UNK
     Dates: start: 2019
  7. CITALOPRAM [CITALOPRAM HYDROBROMIDE] [Concomitant]
     Active Substance: CITALOPRAM HYDROBROMIDE
     Indication: ANXIETY
     Dosage: 20 MG, 1X/DAY (1 TAB ORALLY IN AM DAILY)
     Route: 048
     Dates: start: 2014
  8. FLUZONE [FLUCONAZOLE] [Concomitant]
     Active Substance: FLUCONAZOLE
     Indication: IMMUNISATION
     Dosage: UNK
     Dates: start: 20191031
  9. COPAXONE [Concomitant]
     Active Substance: GLATIRAMER ACETATE
     Indication: MULTIPLE SCLEROSIS
     Dosage: UNK (3X PER WEEK)
     Dates: start: 201409

REACTIONS (2)
  - Fatigue [Not Recovered/Not Resolved]
  - Arthropathy [Recovering/Resolving]

NARRATIVE: CASE EVENT DATE: 20190910
